FAERS Safety Report 24461860 (Version 1)
Quarter: 2024Q4

REPORT INFORMATION
  Report Type: Report from Study
  Country: US (occurrence: US)
  Receive Date: 20241018
  Receipt Date: 20241018
  Transmission Date: 20250114
  Serious: No
  Sender: ROCHE
  Company Number: US-ROCHE-3565864

PATIENT
  Age: 76 Year
  Sex: Female

DRUGS (2)
  1. RITUXAN [Suspect]
     Active Substance: RITUXIMAB
     Indication: Microscopic polyangiitis
     Dosage: DATE OF SERVICE: 17/MAR/2023, 24/MAR/2023, 31/MAR/2023, 07/APR/2023
     Route: 065
  2. RITUXAN [Suspect]
     Active Substance: RITUXIMAB
     Dosage: DATE OF SERVICE: 03/NOV/2023, 17/NOV/2023
     Route: 065

REACTIONS (2)
  - Off label use [Unknown]
  - No adverse event [Unknown]
